FAERS Safety Report 13351505 (Version 1)
Quarter: 2017Q1

REPORT INFORMATION
  Report Type: Spontaneous
  Country: None (occurrence: US)
  Receive Date: 20170320
  Receipt Date: 20170320
  Transmission Date: 20170429
  Serious: No
  Sender: FDA-Public Use
  Company Number: US-GREER LABORATORIES, INC.-1064433

PATIENT
  Age: 11 Year
  Sex: Male
  Weight: 56.36 kg

DRUGS (3)
  1. XOPENEX [Concomitant]
     Active Substance: LEVALBUTEROL HYDROCHLORIDE
     Route: 055
  2. FOOD - FISH AND SHELLFISH, CRAB, CALLINECTES SPP. [Suspect]
     Active Substance: BLUE CRAB
     Indication: FOOD ALLERGY
     Route: 003
  3. FOOD - FISH AND SHELLFISH, SHRIMP, LITOPAENAEUS SETIFERUS\FARFANTEPENA [Suspect]
     Active Substance: NORTHERN BROWN SHRIMP\NORTHERN PINK SHRIMP\NORTHERN WHITE SHRIMP
     Route: 003

REACTIONS (1)
  - Drug ineffective [None]

NARRATIVE: CASE EVENT DATE: 20170104
